FAERS Safety Report 7521935-7 (Version None)
Quarter: 2011Q2

REPORT INFORMATION
  Report Type: 
  Country: None (occurrence: None)
  Receive Date: 20110603
  Receipt Date: 20110520
  Transmission Date: 20111010
  Serious: Yes (Hospitalization, Other)
  Sender: FDA-Public Use
  Company Number: US-ELI_LILLY_AND_COMPANY-US201103008563

PATIENT
  Sex: Female

DRUGS (10)
  1. FORTEO [Suspect]
     Indication: OSTEOPOROSIS
     Dosage: 20 UG, QD
     Route: 058
     Dates: start: 20101230
  2. FISH OIL [Concomitant]
  3. VITAMINS [Concomitant]
  4. FORTEO [Suspect]
     Dosage: 20 UG, QD
     Route: 058
  5. CALCIUM CARBONATE [Concomitant]
  6. GLUCOSAMINE [Concomitant]
  7. NAPROXEN (ALEVE) [Concomitant]
     Indication: MYALGIA
     Dosage: UNK, QD
  8. FORTEO [Suspect]
     Dosage: 20 UG, QD
     Route: 058
     Dates: start: 20110304
  9. FORTEO [Suspect]
     Dosage: 20 UG, QD
     Route: 058
  10. VITAMIN D [Concomitant]

REACTIONS (8)
  - MUSCLE SPASMS [None]
  - MOVEMENT DISORDER [None]
  - ARTHRALGIA [None]
  - IMPAIRED HEALING [None]
  - MYALGIA [None]
  - HIP FRACTURE [None]
  - FALL [None]
  - ARTHRITIS [None]
